FAERS Safety Report 6064822-6 (Version None)
Quarter: 2009Q1

REPORT INFORMATION
  Report Type: 
  Country: None (occurrence: None)
  Receive Date: 20090203
  Receipt Date: 20090203
  Transmission Date: 20090719
  Serious: Yes (Other)
  Sender: FDA-Public Use
  Company Number: None

PATIENT
  Age: 56 Year
  Sex: Male

DRUGS (11)
  1. KEPPRA [Suspect]
     Indication: CONVULSION
     Dosage: TAKE 1 TABLET EVERY 12 HOURS
     Dates: start: 20081028, end: 20090101
  2. TOPROL-XL [Concomitant]
  3. PRILOSEC [Concomitant]
  4. ATIVAN [Concomitant]
  5. NORVASC [Concomitant]
  6. VIAGRA [Concomitant]
  7. LISINOPRIL [Concomitant]
  8. ZETIA [Concomitant]
  9. CAMPRAL [Concomitant]
  10. NAPROXEN [Concomitant]
  11. ZOCOR [Concomitant]

REACTIONS (2)
  - DIARRHOEA [None]
  - URINARY INCONTINENCE [None]
